FAERS Safety Report 18300874 (Version 1)
Quarter: 2020Q3

REPORT INFORMATION
  Report Type: Spontaneous
  Country: US (occurrence: US)
  Receive Date: 20200923
  Receipt Date: 20200923
  Transmission Date: 20201103
  Serious: Yes (Hospitalization)
  Sender: FDA-Public Use
  Company Number: None

PATIENT
  Sex: Male

DRUGS (6)
  1. ACYCLOVIR. [Concomitant]
     Active Substance: ACYCLOVIR
     Dates: start: 20180606
  2. TEMAZEPAM. [Concomitant]
     Active Substance: TEMAZEPAM
     Dates: start: 20180606
  3. GLATIRAMER [Suspect]
     Active Substance: GLATIRAMER
     Indication: MULTIPLE SCLEROSIS
     Route: 058
     Dates: start: 20180801
  4. VITAMIN D3 [Concomitant]
     Active Substance: CHOLECALCIFEROL
     Dates: start: 20180606
  5. ASPIRIN. [Concomitant]
     Active Substance: ASPIRIN
     Dates: start: 20180606
  6. AMPYRA [Concomitant]
     Active Substance: DALFAMPRIDINE
     Dates: start: 20180606

REACTIONS (2)
  - Mobility decreased [None]
  - Pneumonia aspiration [None]
